FAERS Safety Report 24034854 (Version 2)
Quarter: 2024Q3

REPORT INFORMATION
  Report Type: Spontaneous
  Country: CN (occurrence: CN)
  Receive Date: 20240701
  Receipt Date: 20240702
  Transmission Date: 20241017
  Serious: Yes (Other)
  Sender: PFIZER
  Company Number: CN-MLMSERVICE-20240619-PI103908-00218-2

PATIENT
  Age: 62 Year
  Sex: Male

DRUGS (6)
  1. CYTARABINE [Suspect]
     Active Substance: CYTARABINE
     Indication: Acute leukaemia
     Dosage: 6 G D2-3
     Dates: start: 20230828, end: 2023
  2. DOXORUBICIN HYDROCHLORIDE [Suspect]
     Active Substance: DOXORUBICIN HYDROCHLORIDE
     Indication: Acute leukaemia
     Dosage: UNK
     Dates: start: 20230828, end: 2023
  3. METHOTREXATE SODIUM [Suspect]
     Active Substance: METHOTREXATE SODIUM
     Indication: Acute leukaemia
     Dosage: 1G D1
     Dates: start: 20230828, end: 2023
  4. CYCLOPHOSPHAMIDE [Suspect]
     Active Substance: CYCLOPHOSPHAMIDE
     Indication: Acute leukaemia
     Dosage: UNK
     Dates: start: 20230828, end: 2023
  5. DEXAMETHASONE [Suspect]
     Active Substance: DEXAMETHASONE
     Indication: Acute leukaemia
     Dosage: UNK
     Dates: start: 20230828, end: 2023
  6. VINCRISTINE [Suspect]
     Active Substance: VINCRISTINE
     Indication: Acute leukaemia
     Dosage: UNK
     Dates: start: 20230828, end: 2023

REACTIONS (2)
  - Cerebral haemorrhage [Unknown]
  - Myelosuppression [Unknown]

NARRATIVE: CASE EVENT DATE: 20230101
